FAERS Safety Report 6491039-3 (Version None)
Quarter: 2009Q4

REPORT INFORMATION
  Report Type: 
  Country: None (occurrence: None)
  Receive Date: 20091211
  Receipt Date: 20091207
  Transmission Date: 20100525
  Serious: Yes (Other)
  Sender: FDA-Public Use
  Company Number: US-MERCK-0910USA02093

PATIENT
  Age: 49 Year
  Sex: Female

DRUGS (6)
  1. ZOCOR [Suspect]
     Route: 065
  2. REBIF [Suspect]
     Indication: MULTIPLE SCLEROSIS
     Route: 058
     Dates: start: 20030101, end: 20090501
  3. REBIF [Suspect]
     Route: 058
     Dates: start: 20090501, end: 20090501
  4. AVANDIA [Suspect]
     Route: 065
  5. AMARYL [Suspect]
     Route: 065
  6. METFORMIN [Concomitant]
     Indication: TYPE 2 DIABETES MELLITUS
     Route: 065

REACTIONS (2)
  - HEPATOTOXICITY [None]
  - PYREXIA [None]
